FAERS Safety Report 8334034-1 (Version None)
Quarter: 2012Q1

REPORT INFORMATION
  Report Type: 
  Country: None (occurrence: None)
  Receive Date: 20120328
  Receipt Date: 20100409
  Transmission Date: 20120608
  Serious: Yes (Other)
  Sender: FDA-Public Use
  Company Number: PHHY2010US22610

PATIENT
  Age: 77 Year
  Sex: Female

DRUGS (7)
  1. ASPIRIN [Concomitant]
  2. BENICAR HCT [Suspect]
  3. PRAVASTATIN SODIUM [Concomitant]
  4. BYSTOLIC [Concomitant]
  5. BENICAR [Suspect]
  6. LIPITOR [Suspect]
     Dosage: 10 MG
  7. VALTURNA [Suspect]
     Dosage: 300/320 MG, ORAL
     Route: 048

REACTIONS (2)
  - BLOOD CHOLESTEROL ABNORMAL [None]
  - BLOOD PRESSURE INCREASED [None]
